FAERS Safety Report 20515211 (Version 1)
Quarter: 2022Q1

REPORT INFORMATION
  Report Type: Spontaneous
  Country: FR (occurrence: FR)
  Receive Date: 20220224
  Receipt Date: 20220224
  Transmission Date: 20220423
  Serious: Yes (Death)
  Sender: FDA-Public Use
  Company Number: None

PATIENT
  Age: 66 Year
  Sex: Male
  Weight: 63 kg

DRUGS (3)
  1. KEYTRUDA [Suspect]
     Active Substance: PEMBROLIZUMAB
     Indication: Lung neoplasm malignant
     Dosage: 200MGX1X/CYCLE
     Route: 041
     Dates: start: 20211117, end: 20211230
  2. ALIMTA [Suspect]
     Active Substance: PEMETREXED DISODIUM
     Indication: Lung neoplasm malignant
     Dosage: 950MGX1X/CYCLE
     Route: 041
     Dates: start: 20211117, end: 20211230
  3. CARBOPLATIN [Suspect]
     Active Substance: CARBOPLATIN
     Indication: Lung neoplasm malignant
     Dosage: 410MGX1X/CYCLE
     Route: 041
     Dates: start: 20211117, end: 20211230

REACTIONS (2)
  - Cardiac failure acute [Fatal]
  - Low cardiac output syndrome [Fatal]

NARRATIVE: CASE EVENT DATE: 20220115
